FAERS Safety Report 25721163 (Version 1)
Quarter: 2025Q3

REPORT INFORMATION
  Report Type: Spontaneous
  Country: EU (occurrence: EU)
  Receive Date: 20250825
  Receipt Date: 20250825
  Transmission Date: 20251020
  Serious: Yes (Hospitalization)
  Sender: MYLAN
  Company Number: None

PATIENT
  Age: 29 Year
  Sex: Male
  Weight: 102 kg

DRUGS (6)
  1. LYRICA [Interacting]
     Active Substance: PREGABALIN
     Indication: Product used for unknown indication
     Dates: start: 20250710, end: 20250710
  2. RIVOTRIL [Interacting]
     Active Substance: CLONAZEPAM
     Indication: Product used for unknown indication
     Dates: start: 20250710, end: 20250710
  3. SERTRALINE HYDROCHLORIDE [Interacting]
     Active Substance: SERTRALINE HYDROCHLORIDE
     Indication: Product used for unknown indication
     Dates: start: 20250710, end: 20250710
  4. LYRICA [Concomitant]
     Active Substance: PREGABALIN
     Indication: Borderline personality disorder
     Dosage: 100 MILLIGRAM, QD (24 HR, 1-0-0, 84 CAPSULE)
     Dates: start: 20241205, end: 20250709
  5. RIVOTRIL [Concomitant]
     Active Substance: CLONAZEPAM
     Indication: Borderline personality disorder
     Dosage: 1 MILLIGRAM, QD (24 HOURS) (0.5MG 2-0-0, 60 TABLETS)
     Dates: start: 20190416, end: 20250709
  6. SERTRALINE HYDROCHLORIDE [Concomitant]
     Active Substance: SERTRALINE HYDROCHLORIDE
     Indication: Borderline personality disorder
     Dosage: 200 MILLIGRAM, QD (24 HR, 1-0-0, 30 TABLETS )
     Dates: start: 20241125, end: 20250709

REACTIONS (4)
  - Electrocardiogram QT prolonged [Recovered/Resolved]
  - Somnolence [Recovered/Resolved]
  - Respiratory depression [Recovered/Resolved]
  - Intentional overdose [Recovered/Resolved]

NARRATIVE: CASE EVENT DATE: 20250710
